FAERS Safety Report 14991193 (Version 1)
Quarter: 2018Q2

REPORT INFORMATION
  Report Type: Spontaneous
  Country: US (occurrence: US)
  Receive Date: 20180608
  Receipt Date: 20180608
  Transmission Date: 20180711
  Serious: Yes (Hospitalization)
  Sender: FDA-Public Use
  Company Number: US-ALLERGAN-1829648US

PATIENT
  Age: 36 Year
  Sex: Female

DRUGS (4)
  1. MESALAZINE - BP [Suspect]
     Active Substance: MESALAMINE
     Dosage: UNK, UNKNOWN
     Route: 065
     Dates: start: 2004, end: 2016
  2. MESALAZINE - BP [Suspect]
     Active Substance: MESALAMINE
     Dosage: 1600 MG (TWO 800 MG TABLETS), BID
     Route: 048
  3. MESALAZINE - BP [Suspect]
     Active Substance: MESALAMINE
     Dosage: 1600 MG (TWO 800 MG TABLETS), BID
     Route: 048
     Dates: start: 2016
  4. MESALAZINE - BP [Suspect]
     Active Substance: MESALAMINE
     Indication: COLITIS ULCERATIVE
     Dosage: 1600 MG (TWO 800 MG TABLETS), BID
     Route: 048
     Dates: start: 2016, end: 20180517

REACTIONS (10)
  - Skin ulcer [Recovered/Resolved]
  - Rectal haemorrhage [Recovered/Resolved]
  - Malaise [Not Recovered/Not Resolved]
  - Inappropriate schedule of drug administration [Unknown]
  - Gastrooesophageal reflux disease [Not Recovered/Not Resolved]
  - Rash [Not Recovered/Not Resolved]
  - Gastrointestinal infection [Recovered/Resolved]
  - Blood urine present [Recovered/Resolved]
  - Gastrointestinal pain [Not Recovered/Not Resolved]
  - Drug ineffective [Unknown]

NARRATIVE: CASE EVENT DATE: 2016
